FAERS Safety Report 14526398 (Version 1)
Quarter: 2018Q1

REPORT INFORMATION
  Report Type: Report from Study
  Country: DE (occurrence: DE)
  Receive Date: 20180213
  Receipt Date: 20180213
  Transmission Date: 20180509
  Serious: Yes (Hospitalization, Other)
  Sender: FDA-Public Use
  Company Number: DE-BAXTER-2018BAX004839

PATIENT
  Age: 68 Year
  Sex: Female
  Weight: 50 kg

DRUGS (19)
  1. XELODA [Suspect]
     Active Substance: CAPECITABINE
     Indication: BREAST CANCER
     Route: 065
     Dates: start: 20111019, end: 20111206
  2. DEXAMETHASONE. [Suspect]
     Active Substance: DEXAMETHASONE
     Indication: BREAST CANCER METASTATIC
     Route: 042
     Dates: start: 20110825
  3. ZOMETA [Concomitant]
     Active Substance: ZOLEDRONIC ACID
     Indication: BREAST CANCER
     Route: 065
     Dates: start: 20110825
  4. XELODA [Suspect]
     Active Substance: CAPECITABINE
     Route: 065
     Dates: start: 20111109
  5. PACLITAXEL. [Suspect]
     Active Substance: PACLITAXEL
     Indication: BREAST CANCER METASTATIC
     Route: 042
     Dates: start: 20110825, end: 20110922
  6. GRANISETRON ROTEXMEDICA 1 MG/ML INJEKTIONSL?SUNG [Suspect]
     Active Substance: GRANISETRON HYDROCHLORIDE
     Indication: BREAST CANCER METASTATIC
     Route: 042
     Dates: start: 20110825
  7. XELODA [Suspect]
     Active Substance: CAPECITABINE
     Route: 065
     Dates: start: 20111206
  8. AVASTIN [Suspect]
     Active Substance: BEVACIZUMAB
     Indication: BREAST CANCER
     Route: 042
     Dates: start: 20110825, end: 20111205
  9. TORSEMIDE. [Concomitant]
     Active Substance: TORSEMIDE
     Indication: PRODUCT USED FOR UNKNOWN INDICATION
     Dosage: (3)
     Route: 065
  10. DENOSUMAB [Concomitant]
     Active Substance: DENOSUMAB
     Route: 065
     Dates: start: 20120116
  11. TORSEMIDE. [Concomitant]
     Active Substance: TORSEMIDE
     Indication: PRODUCT USED FOR UNKNOWN INDICATION
     Dosage: DOSE: 3 (UNITS NOT REPORTED).
     Route: 065
  12. RANITIDIN [Suspect]
     Active Substance: RANITIDINE HYDROCHLORIDE
     Indication: BREAST CANCER METASTATIC
     Route: 042
     Dates: start: 20110825
  13. TAVEGIL [Suspect]
     Active Substance: CLEMASTINE FUMARATE
     Indication: BREAST CANCER METASTATIC
     Route: 042
     Dates: start: 20110825
  14. HYDROCHLOROTHIAZIDE. [Concomitant]
     Active Substance: HYDROCHLOROTHIAZIDE
     Indication: PRODUCT USED FOR UNKNOWN INDICATION
     Route: 065
     Dates: start: 201001
  15. ARIXTRA [Concomitant]
     Active Substance: FONDAPARINUX SODIUM
     Indication: THROMBOSIS PROPHYLAXIS
     Route: 065
     Dates: start: 20111219
  16. ZOLEDRONIC ACID [Suspect]
     Active Substance: ZOLEDRONIC ACID
     Indication: BREAST CANCER METASTATIC
     Route: 042
     Dates: start: 20110825, end: 20110825
  17. TROFEN [Concomitant]
     Indication: PRODUCT USED FOR UNKNOWN INDICATION
     Route: 065
  18. DENOSUMAB [Concomitant]
     Active Substance: DENOSUMAB
     Indication: BREAST CANCER
     Route: 065
     Dates: start: 20101020
  19. METOPROLOL. [Concomitant]
     Active Substance: METOPROLOL
     Indication: PRODUCT USED FOR UNKNOWN INDICATION
     Dosage: DOSE: 2 (UNITS NOT REPORTED).
     Route: 065

REACTIONS (13)
  - Thrombosis [Not Recovered/Not Resolved]
  - Periodontitis [Not Recovered/Not Resolved]
  - Vomiting [Recovered/Resolved]
  - General physical health deterioration [Recovered/Resolved]
  - Sensory disturbance [Recovered/Resolved]
  - Nausea [Recovered/Resolved]
  - Diarrhoea [Recovered/Resolved]
  - Weight decreased [Recovered/Resolved]
  - Pulpitis dental [Recovered/Resolved]
  - Dysphagia [Recovered/Resolved]
  - Dyspnoea [Recovered/Resolved]
  - Mucosal inflammation [Recovered/Resolved]
  - Tooth erosion [Recovered/Resolved]

NARRATIVE: CASE EVENT DATE: 20110827
